FAERS Safety Report 21071642 (Version 1)
Quarter: 2022Q3

REPORT INFORMATION
  Report Type: Spontaneous
  Country: CN (occurrence: CN)
  Receive Date: 20220712
  Receipt Date: 20220712
  Transmission Date: 20221027
  Serious: Yes (Other)
  Sender: FDA-Public Use
  Company Number: CN-PFIZER INC-PV202200019321

PATIENT
  Age: 2 Year
  Sex: Female
  Weight: 12 kg

DRUGS (8)
  1. METHOTREXATE SODIUM [Suspect]
     Active Substance: METHOTREXATE SODIUM
     Indication: Chemotherapy
     Dosage: 2.6 G, 1X/DAY (5 G/M2/D INTRAVENOUS 24H DAY1 PRACTICAL 2.6G)
     Route: 042
     Dates: start: 20220621, end: 20220621
  2. CYTARABINE [Suspect]
     Active Substance: CYTARABINE
     Dosage: 1.04 G (2 G/M2/TIME INTRAVENOUS} 3H, DAY5, PRACTICAL 1.04G)
     Route: 042
  3. PEGASPARGASE [Suspect]
     Active Substance: PEGASPARGASE
     Indication: Chemotherapy
     Dosage: 1300 IU, 1X/DAY (2500U/M2/TIME DAY6, PRACTICAL 1300U)
     Route: 030
     Dates: start: 20220302, end: 20220629
  4. CYCLOPHOSPHAMIDE [Suspect]
     Active Substance: CYCLOPHOSPHAMIDE
     Indication: Chemotherapy
     Dosage: 104 MG, 2X/DAY ( 200 MG/M2/TIME INTRAVENOUS FOR 1H DAY2-4 PRACTICAL 104 MG)
     Route: 042
     Dates: start: 20220622, end: 20220624
  5. VINDESINE SULFATE [Suspect]
     Active Substance: VINDESINE SULFATE
     Indication: Chemotherapy
     Dosage: 1.56 MG, ONCE EVERY 3 DAYS (3 MG/M2/D INTRAVENOUS DAY1, 6 PRACTICAL 1.56 MG)
     Route: 042
     Dates: start: 20220621, end: 20220625
  6. VINDESINE SULFATE [Suspect]
     Active Substance: VINDESINE SULFATE
     Dosage: 1.04 G, 2X/DAY
     Route: 042
     Dates: start: 20220625, end: 20220625
  7. DEXAMETHASONE ACETATE [Suspect]
     Active Substance: DEXAMETHASONE ACETATE
     Indication: Chemotherapy
     Dosage: 3.5 G, 3X/DAY (20 MG/M2/D ORALLY TID DAY1-5, PRACTICAL 10.4 MG)
     Route: 048
     Dates: start: 20220621, end: 20220625
  8. DEXTROSE [Concomitant]
     Active Substance: DEXTROSE
     Indication: Vehicle solution use
     Dosage: 100 ML, 2X/DAY
     Route: 042
     Dates: start: 20220621, end: 20220625

REACTIONS (7)
  - White blood cell count decreased [Unknown]
  - Neutrophil count decreased [Recovering/Resolving]
  - Pyrexia [Recovering/Resolving]
  - Lymphocyte count decreased [Unknown]
  - Platelet count decreased [Unknown]
  - Anaemia [Unknown]
  - Off label use [Unknown]

NARRATIVE: CASE EVENT DATE: 20220629
